FAERS Safety Report 5398931-1 (Version None)
Quarter: 2007Q3

REPORT INFORMATION
  Report Type: 
  Country: None (occurrence: None)
  Receive Date: 20070727
  Receipt Date: 20070718
  Transmission Date: 20080115
  Serious: Yes (Death)
  Sender: FDA-Public Use
  Company Number: US-JNJFOC-20060805860

PATIENT
  Sex: Female
  Weight: 95.26 kg

DRUGS (3)
  1. ORTHO EVRA [Suspect]
     Indication: DRUG USE FOR UNKNOWN INDICATION
     Route: 062
  2. ZITHROMAX [Concomitant]
  3. LEVAQUIN [Concomitant]

REACTIONS (2)
  - PULMONARY EMBOLISM [None]
  - VENOUS THROMBOSIS [None]
